FAERS Safety Report 6028940-0 (Version None)
Quarter: 2009Q1

REPORT INFORMATION
  Report Type: 
  Country: None (occurrence: None)
  Receive Date: 20090106
  Receipt Date: 20090105
  Transmission Date: 20090719
  Serious: Yes (Other)
  Sender: FDA-Public Use
  Company Number: GB-WYE-G02877809

PATIENT
  Age: 63 Year
  Sex: Female

DRUGS (2)
  1. PIPERACILLIN AND TAZOBACTAM [Suspect]
     Dosage: UNKNOWN
     Route: 042
  2. PIPERACILLIN AND TAZOBACTAM [Suspect]
     Dosage: UNKNOWN

REACTIONS (4)
  - ERYTHEMA [None]
  - HYPERHIDROSIS [None]
  - INCORRECT DRUG ADMINISTRATION DURATION [None]
  - PRURITUS GENERALISED [None]
